FAERS Safety Report 7639376-0 (Version None)
Quarter: 2011Q3

REPORT INFORMATION
  Report Type: 
  Country: None (occurrence: None)
  Receive Date: 20110722
  Receipt Date: 20110706
  Transmission Date: 20111222
  Serious: Yes (Hospitalization, Other)
  Sender: FDA-Public Use
  Company Number: 2011MA008423

PATIENT
  Age: 74 Year
  Sex: Female

DRUGS (1)
  1. DICLOFENAC SODIUM [Suspect]
     Indication: PRODUCT USED FOR UNKNOWN INDICATION
     Dosage: PO
     Route: 048

REACTIONS (6)
  - ELECTROCARDIOGRAM ST SEGMENT ELEVATION [None]
  - ATRIOVENTRICULAR BLOCK COMPLETE [None]
  - BLOOD IMMUNOGLOBULIN E INCREASED [None]
  - KOUNIS SYNDROME [None]
  - ARTERIOSCLEROSIS CORONARY ARTERY [None]
  - UPPER RESPIRATORY TRACT INFECTION [None]
